FAERS Safety Report 4280495-7 (Version None)
Quarter: 2004Q1

REPORT INFORMATION
  Report Type: 
  Country: None (occurrence: None)
  Receive Date: 20040127
  Receipt Date: 20040112
  Transmission Date: 20041129
  Serious: Yes (Hospitalization)
  Sender: FDA-Public Use
  Company Number: 2004CG00065

PATIENT
  Age: 71 Year
  Sex: Male
  Weight: 110 kg

DRUGS (4)
  1. MOPRAL [Suspect]
     Dosage: 20 MG DAILY PO
     Route: 048
  2. BETATOP [Suspect]
     Indication: HYPERTENSION
  3. PREVISCAN [Suspect]
     Indication: ARRHYTHMIA SUPRAVENTRICULAR
     Dosage: 30 MG DAILY PO
     Route: 048
  4. TAXOTERE [Suspect]
     Indication: OESOPHAGEAL CARCINOMA RECURRENT
     Dates: start: 20031001

REACTIONS (7)
  - CUTANEOUS VASCULITIS [None]
  - INFLAMMATION [None]
  - PROTEINURIA [None]
  - PURPURA [None]
  - RENAL VASCULITIS [None]
  - SKIN NECROSIS [None]
  - SKIN ULCER [None]
